FAERS Safety Report 7982334-7 (Version None)
Quarter: 2011Q4

REPORT INFORMATION
  Report Type: 
  Country: None (occurrence: None)
  Receive Date: 20111215
  Receipt Date: 20111204
  Transmission Date: 20120403
  Serious: Yes (Other)
  Sender: FDA-Public Use
  Company Number: PHHY2009CA23227

PATIENT
  Sex: Female
  Weight: 74 kg

DRUGS (18)
  1. METHOTREXATE [Concomitant]
     Dosage: 20 MG, UNK
  2. OXAZEPAM [Concomitant]
     Dosage: 30 MG, UNK
  3. ACLASTA/ZOLEDRONATE [Suspect]
     Dosage: 5 MG, UNK
     Route: 042
     Dates: start: 20111124
  4. PANTOPRAZOLE SODIUM [Concomitant]
     Dosage: UNK UKN, UNK
  5. NITROGLICERINA [Concomitant]
  6. SENNOSIDES A+B [Concomitant]
  7. LACTULOSE [Concomitant]
     Dosage: UNK UKN, UNK
  8. ALENDRONATE SODIUM [Concomitant]
     Dosage: 70 MG, UNK
     Dates: start: 20080531, end: 20090813
  9. ACETAMINOPHEN [Concomitant]
     Dosage: UNK UKN, UNK
  10. ACLASTA/ZOLEDRONATE [Suspect]
     Dosage: 5 MG, UNK
     Route: 042
     Dates: start: 20090813
  11. DOCUSATE [Concomitant]
     Dosage: 3 DF, BID
  12. COUMADIN [Concomitant]
     Dosage: UNK UKN, UNK
  13. THYROXIN [Concomitant]
  14. PREDNISONE [Concomitant]
     Dosage: 2.5 MG, QD
  15. ACLASTA/ZOLEDRONATE [Suspect]
     Dosage: 5 MG, UNK
     Route: 042
     Dates: start: 20101125
  16. ATENOLOL [Concomitant]
     Dosage: 50 MG, QD
  17. CALCIUM [Concomitant]
     Dosage: UNK UKN, UNK
  18. VITAMIN D [Concomitant]

REACTIONS (5)
  - ACCIDENT [None]
  - FALL [None]
  - BLOOD PRESSURE SYSTOLIC INCREASED [None]
  - SOMNAMBULISM [None]
  - RIB FRACTURE [None]
